FAERS Safety Report 19720937 (Version 1)
Quarter: 2021Q3

REPORT INFORMATION
  Report Type: Spontaneous
  Country: US (occurrence: US)
  Receive Date: 20210819
  Receipt Date: 20210819
  Transmission Date: 20211014
  Serious: No
  Sender: FDA-Public Use
  Company Number: None

PATIENT
  Sex: Female
  Weight: 64.98 kg

DRUGS (15)
  1. TUKYSA [Suspect]
     Active Substance: TUCATINIB
  2. CAPECITABINE. [Suspect]
     Active Substance: CAPECITABINE
     Indication: ADENOCARCINOMA
     Dosage: ?          OTHER FREQUENCY:BID 14/21 DAYS;?
     Route: 048
     Dates: start: 20210714, end: 20210809
  3. CRESTOR [Concomitant]
     Active Substance: ROSUVASTATIN CALCIUM
  4. NORCO [Concomitant]
     Active Substance: ACETAMINOPHEN\HYDROCODONE BITARTRATE
  5. TURMERIC [Concomitant]
     Active Substance: HERBALS\TURMERIC
  6. ASPIRIN. [Concomitant]
     Active Substance: ASPIRIN
  7. BIOTIN [Concomitant]
     Active Substance: BIOTIN
  8. MULTIVITAMIN [Concomitant]
     Active Substance: VITAMINS
  9. L?CARNITINE [Concomitant]
     Active Substance: LEVOCARNITINE
  10. COLLAGEN [Concomitant]
     Active Substance: COLLAGEN
  11. FISH OIL [Concomitant]
     Active Substance: FISH OIL
  12. MAGNESIUM [Concomitant]
     Active Substance: MAGNESIUM
  13. ONDANSETRON [Concomitant]
     Active Substance: ONDANSETRON
  14. VITAMIN D (CHOLECALCIFEROL) [Concomitant]
     Active Substance: CHOLECALCIFEROL
  15. LIDODERM [Concomitant]
     Active Substance: LIDOCAINE

REACTIONS (3)
  - Dyspnoea [None]
  - Extrasystoles [None]
  - Therapy cessation [None]
